FAERS Safety Report 17129147 (Version 1)
Quarter: 2019Q4

REPORT INFORMATION
  Report Type: Spontaneous
  Country: SK (occurrence: SK)
  Receive Date: 20191209
  Receipt Date: 20191209
  Transmission Date: 20200122
  Serious: Yes (Other)
  Sender: FDA-Public Use
  Company Number: SK-009507513-1912SVK002770

PATIENT
  Age: 30 Year
  Sex: Female

DRUGS (1)
  1. ZEPATIER [Suspect]
     Active Substance: ELBASVIR\GRAZOPREVIR
     Indication: CHRONIC HEPATITIS C
     Dosage: UNK
     Route: 048

REACTIONS (3)
  - Hypertension [Recovered/Resolved]
  - Blood pressure fluctuation [Recovered/Resolved]
  - Hypertensive crisis [Recovered/Resolved]
